FAERS Safety Report 20599236 (Version 5)
Quarter: 2023Q1

REPORT INFORMATION
  Report Type: Spontaneous
  Country: US (occurrence: US)
  Receive Date: 20220315
  Receipt Date: 20230308
  Transmission Date: 20230418
  Serious: No
  Sender: FDA-Public Use
  Company Number: US-SA-SAC20220311000292

PATIENT
  Age: 59 Year
  Sex: Male

DRUGS (1)
  1. DUPIXENT [Suspect]
     Active Substance: DUPILUMAB
     Indication: Dermatitis atopic
     Dosage: 300 MG, QOW
     Route: 058
     Dates: start: 20211214

REACTIONS (15)
  - Eye pain [Unknown]
  - Asthenopia [Unknown]
  - Fatigue [Unknown]
  - Alopecia [Unknown]
  - Depressed mood [Unknown]
  - Skin irritation [Unknown]
  - Muscle atrophy [Unknown]
  - Insomnia [Unknown]
  - Hypersomnia [Unknown]
  - Feeling abnormal [Unknown]
  - Somnolence [Unknown]
  - Vision blurred [Unknown]
  - Pruritus [Unknown]
  - Ocular hyperaemia [Unknown]
  - Dry eye [Unknown]

NARRATIVE: CASE EVENT DATE: 20220701
